FAERS Safety Report 9772214 (Version 3)
Quarter: 2014Q1

REPORT INFORMATION
  Report Type: Spontaneous
  Country: US (occurrence: US)
  Receive Date: 20131219
  Receipt Date: 20140116
  Transmission Date: 20141002
  Serious: Yes (Life-Threatening, Hospitalization, Disabling)
  Sender: FDA-Public Use
  Company Number: US-MYLANLABS-2013S1027982

PATIENT
  Age: 37 Year
  Sex: Male
  Weight: 95.26 kg

DRUGS (3)
  1. EPIPEN 2-PAK [Suspect]
     Indication: ALLERGY TO ARTHROPOD STING
     Route: 030
     Dates: start: 2003
  2. BLOOD PRESSURE MEDICATION [Concomitant]
  3. CHOLESTEROL MEDICATION [Concomitant]

REACTIONS (7)
  - Necrotising fasciitis [Not Recovered/Not Resolved]
  - Clostridial infection [Not Recovered/Not Resolved]
  - Sepsis [Recovered/Resolved]
  - Myositis [Not Recovered/Not Resolved]
  - Pain in extremity [Not Recovered/Not Resolved]
  - Unevaluable event [Not Recovered/Not Resolved]
  - Injection site injury [Not Recovered/Not Resolved]
